FAERS Safety Report 4544815-8 (Version None)
Quarter: 2005Q1

REPORT INFORMATION
  Report Type: 
  Country: None (occurrence: None)
  Receive Date: 20050105
  Receipt Date: 20041208
  Transmission Date: 20050727
  Serious: Yes (Hospitalization)
  Sender: FDA-Public Use
  Company Number: JP-ROCHE-388871

PATIENT
  Age: 7 Year
  Sex: Male
  Weight: 37.5 kg

DRUGS (12)
  1. CELLCEPT [Suspect]
     Route: 048
     Dates: start: 20021116, end: 20030109
  2. PREDONINE [Suspect]
     Route: 048
     Dates: start: 20021210, end: 20021219
  3. PREDONINE [Suspect]
     Route: 048
     Dates: start: 20021220, end: 20030227
  4. PROGRAF [Suspect]
     Route: 048
     Dates: start: 20021116, end: 20021120
  5. PROGRAF [Suspect]
     Route: 048
     Dates: start: 20021115, end: 20021129
  6. PROGRAF [Suspect]
     Route: 048
     Dates: start: 20021130, end: 20021130
  7. PROGRAF [Suspect]
     Route: 048
     Dates: start: 20021201, end: 20021202
  8. PROGRAF [Suspect]
     Route: 048
     Dates: start: 20021203
  9. PROGRAF [Suspect]
     Route: 042
     Dates: start: 20021120, end: 20021124
  10. SIMULECT [Suspect]
     Route: 042
  11. BREDININ [Suspect]
     Dosage: MYCOPHENOLATE MOFETIL SWITCHED TO MIZORIBINE.
     Route: 048
     Dates: start: 20030116
  12. GASTER [Concomitant]
     Route: 048
     Dates: start: 20021225, end: 20030220

REACTIONS (5)
  - CALCULUS URINARY [None]
  - GASTRITIS [None]
  - HAEMATURIA [None]
  - HYPERURICAEMIA [None]
  - URETERIC DILATATION [None]
